FAERS Safety Report 5042436-4 (Version None)
Quarter: 2006Q2

REPORT INFORMATION
  Report Type: 
  Country: None (occurrence: None)
  Receive Date: 20060627
  Receipt Date: 20060614
  Transmission Date: 20061013
  Serious: Yes (Hospitalization)
  Sender: FDA-Public Use
  Company Number: 2006-144039-NL

PATIENT
  Age: 50 Year
  Sex: Female

DRUGS (7)
  1. DANAPAROID SODIUM [Suspect]
     Indication: HEPARIN-INDUCED THROMBOCYTOPENIA
     Dosage: 2000 IU BID/1750 IU BID/750 IU TID
     Dates: end: 20060401
  2. DANAPAROID SODIUM [Suspect]
     Indication: HEPARIN-INDUCED THROMBOCYTOPENIA
     Dosage: 2000 IU BID/1750 IU BID/750 IU TID
     Dates: start: 20060401
  3. HEPARIN-FRACTION, SODIUM SALT [Concomitant]
  4. OMEPRAZOLE [Concomitant]
  5. PAROXETINE HYDROCHLORIDE [Concomitant]
  6. FOLIC ACID [Concomitant]
  7. FERROUS SULFATE TAB [Concomitant]

REACTIONS (5)
  - ABDOMINAL HAEMATOMA [None]
  - ANAEMIA [None]
  - LEUKOPENIA [None]
  - NEUTROPENIA [None]
  - PLATELET COUNT DECREASED [None]
